FAERS Safety Report 12891239 (Version 1)
Quarter: 2016Q4

REPORT INFORMATION
  Report Type: Spontaneous
  Country: US (occurrence: US)
  Receive Date: 20161026
  Receipt Date: 20161026
  Transmission Date: 20170207
  Serious: Yes (Life-Threatening, Hospitalization)
  Sender: FDA-Public Use
  Company Number: None

PATIENT
  Age: 65 Year
  Sex: Female
  Weight: 75.87 kg

DRUGS (9)
  1. COMPAZINE [Concomitant]
     Active Substance: PROCHLORPERAZINE MALEATE
  2. MAGNESIUM [Concomitant]
     Active Substance: MAGNESIUM
  3. LEUCOVORIN. [Concomitant]
     Active Substance: LEUCOVORIN
  4. ALOXI [Concomitant]
     Active Substance: PALONOSETRON HYDROCHLORIDE
  5. OXALIPLATIN. [Concomitant]
     Active Substance: OXALIPLATIN
  6. AVASTIN [Suspect]
     Active Substance: BEVACIZUMAB
     Indication: COLON CANCER
     Dosage: ?          OTHER FREQUENCY:EVERY 14 DAYS;?
     Route: 041
     Dates: start: 20160808, end: 20161026
  7. DECADRON [Concomitant]
     Active Substance: DEXAMETHASONE
  8. CALCIUM [Concomitant]
     Active Substance: CALCIUM
  9. HEPARIN [Concomitant]
     Active Substance: HEPARIN SODIUM

REACTIONS (9)
  - Hyperhidrosis [None]
  - Malaise [None]
  - Unresponsive to stimuli [None]
  - Generalised erythema [None]
  - Acute myocardial infarction [None]
  - Respiratory arrest [None]
  - Confusional state [None]
  - Dyspnoea [None]
  - Pulse absent [None]

NARRATIVE: CASE EVENT DATE: 20161026
